FAERS Safety Report 23842932 (Version 1)
Quarter: 2024Q2

REPORT INFORMATION
  Report Type: Spontaneous
  Country: DE (occurrence: DE)
  Receive Date: 20240510
  Receipt Date: 20240510
  Transmission Date: 20240716
  Serious: Yes (Other)
  Sender: FDA-Public Use
  Company Number: DE-AMERICAN REGENT INC-2024001695

PATIENT
  Age: 40 Year
  Sex: Female

DRUGS (1)
  1. FERINJECT [Suspect]
     Active Substance: FERRIC CARBOXYMALTOSE
     Indication: Product used for unknown indication
     Dosage: 500 MILLIGRAM

REACTIONS (4)
  - Serum ferritin increased [Unknown]
  - C-reactive protein increased [Unknown]
  - Asthenia [Unknown]
  - Skin discolouration [Recovering/Resolving]
